FAERS Safety Report 8018010-4 (Version None)
Quarter: 2012Q1

REPORT INFORMATION
  Report Type: 
  Country: None (occurrence: None)
  Receive Date: 20120103
  Receipt Date: 20111222
  Transmission Date: 20120608
  Serious: No
  Sender: FDA-Public Use
  Company Number: US-COVIDIEN/TYCO HEALTHCARE/MALLINCKRODT-T201102763

PATIENT
  Age: 43 Year
  Sex: Female

DRUGS (1)
  1. EXALGO [Suspect]
     Dosage: 8 MG, QD
     Route: 048
     Dates: start: 20110101

REACTIONS (1)
  - MEDICATION ERROR [None]
